FAERS Safety Report 20822922 (Version 3)
Quarter: 2023Q2

REPORT INFORMATION
  Report Type: Spontaneous
  Country: AU (occurrence: AU)
  Receive Date: 20220512
  Receipt Date: 20230627
  Transmission Date: 20230721
  Serious: Yes (Hospitalization, Other)
  Sender: FDA-Public Use
  Company Number: AU-CELGENE-AUS-20211208274

PATIENT
  Age: 86 Year
  Sex: Female
  Weight: 78 kg

DRUGS (25)
  1. AZACITIDINE [Suspect]
     Active Substance: AZACITIDINE
     Indication: Acute myeloid leukaemia
     Dosage: 132 MILLIGRAM, QD
     Route: 042
     Dates: start: 20211021
  2. AZACITIDINE [Suspect]
     Active Substance: AZACITIDINE
     Dosage: 130.5 MILLIGRAM, QD
     Route: 042
     Dates: start: 20211207
  3. BGB-11417 [Suspect]
     Active Substance: BGB-11417
     Indication: Acute myeloid leukaemia
     Dosage: 5 MILLIGRAM, QD
     Route: 048
     Dates: start: 20211022
  4. BGB-11417 [Suspect]
     Active Substance: BGB-11417
     Dosage: 40 MILLIGRAM, QD
     Route: 048
     Dates: start: 20211129
  5. FILGRASTIM [Concomitant]
     Active Substance: FILGRASTIM
     Indication: Neutropenia
     Dosage: FREQUENCY TEXT: NOT PROVIDED
     Dates: start: 20220331, end: 20220418
  6. VITAMIN D3 [Concomitant]
     Active Substance: CHOLECALCIFEROL
     Indication: Osteoporosis
     Dosage: FREQUENCY TEXT: NOT PROVIDED
     Route: 048
     Dates: start: 2013
  7. FESS NATURAL [Concomitant]
     Indication: Sinus congestion
     Route: 045
     Dates: start: 20210901
  8. METOPROLOL [Concomitant]
     Active Substance: METOPROLOL
     Indication: Hypertension
     Dosage: FREQUENCY TEXT: NOT PROVIDED
     Route: 048
     Dates: start: 20210710
  9. EZETIMIBE [Concomitant]
     Active Substance: EZETIMIBE
     Indication: Hypercholesterolaemia
     Dosage: UNK
     Route: 048
     Dates: start: 1985
  10. CANDESARTAN [Concomitant]
     Active Substance: CANDESARTAN
     Indication: Hypertension
     Dosage: FREQUENCY TEXT: NOT PROVIDED
     Route: 048
     Dates: start: 2008, end: 20220429
  11. CALCIUM CARBONATE [Concomitant]
     Active Substance: CALCIUM CARBONATE
     Indication: Osteoporosis
     Dosage: FREQUENCY TEXT: NOT PROVIDED
     Route: 048
     Dates: start: 2013
  12. SODIUM CHLORIDE [Concomitant]
     Active Substance: SODIUM CHLORIDE
     Indication: Product used for unknown indication
     Dosage: FREQUENCY TEXT: NOT PROVIDED
     Dates: start: 20210901
  13. GAVISCON [MAGNESIUM ALGINATE;SODIUM ALGINATE] [Concomitant]
     Indication: Gastrooesophageal reflux disease
     Dosage: FREQUENCY TEXT: NOT PROVIDED
     Route: 048
     Dates: start: 2019
  14. PROCHLORPERAZINE [Concomitant]
     Active Substance: PROCHLORPERAZINE
     Indication: Vertigo
     Dosage: FREQUENCY TEXT: NOT PROVIDED
     Route: 048
     Dates: start: 2019
  15. ROSUVASTATIN [Concomitant]
     Active Substance: ROSUVASTATIN
     Indication: Hypercholesterolaemia
     Dosage: FREQUENCY TEXT: NOT PROVIDED
     Route: 048
     Dates: start: 1985
  16. ISOSORBIDE MONONITRATE [Concomitant]
     Active Substance: ISOSORBIDE MONONITRATE
     Indication: Myocardial ischaemia
     Dosage: FREQUENCY TEXT: NOT PROVIDED
     Route: 048
     Dates: start: 2008
  17. NEXIUM [Concomitant]
     Active Substance: ESOMEPRAZOLE MAGNESIUM
     Indication: Gastrooesophageal reflux disease
     Dosage: FREQUENCY TEXT: NOT PROVIDED
     Dates: start: 20181219
  18. ALLOPURINOL [Concomitant]
     Active Substance: ALLOPURINOL
     Indication: Prophylaxis
     Dosage: FREQUENCY TEXT: NOT PROVIDED
     Dates: start: 20211014, end: 20220421
  19. VALACYCLOVIR [Concomitant]
     Active Substance: VALACYCLOVIR HYDROCHLORIDE
     Indication: Antiviral prophylaxis
     Dosage: FREQUENCY TEXT: NOT PROVIDED
     Dates: start: 20210121
  20. DOCUSATE SODIUM\SENNOSIDES A AND B [Concomitant]
     Active Substance: DOCUSATE SODIUM\SENNOSIDES A AND B
     Indication: Constipation
     Dosage: FREQUENCY TEXT: NOT PROVIDED
     Dates: start: 202111, end: 202111
  21. KEFLEX [Concomitant]
     Active Substance: CEPHALEXIN
     Indication: Folliculitis
     Dosage: FREQUENCY TEXT: NOT PROVIDED
     Dates: start: 20211116, end: 20211121
  22. MAGNESIUM [Concomitant]
     Active Substance: MAGNESIUM
     Indication: Muscle spasms
     Dosage: FREQUENCY TEXT: NOT PROVIDED
     Dates: start: 20211116, end: 20220805
  23. NYSTATIN [Concomitant]
     Active Substance: NYSTATIN
     Indication: Mouth ulceration
     Dosage: FREQUENCY TEXT: NOT PROVIDED
     Dates: start: 20211116, end: 202201
  24. PROCTOSEDYL [BENZOCAINE;BUTYL AMINOBENZOATE;ESCULOSIDE;FRAMYCETIN SULF [Concomitant]
     Indication: Haemorrhoids
     Dosage: FREQUENCY TEXT: NOT PROVIDED
     Dates: start: 20211116, end: 20211124
  25. AMBISOME [Concomitant]
     Active Substance: AMPHOTERICIN B
     Indication: Prophylaxis
     Dosage: FREQUENCY TEXT: NOT PROVIDED
     Dates: start: 20211118, end: 20211126

REACTIONS (1)
  - Device related thrombosis [Recovered/Resolved]

NARRATIVE: CASE EVENT DATE: 20211210
